FAERS Safety Report 7247032-6 (Version None)
Quarter: 2011Q1

REPORT INFORMATION
  Report Type: 
  Country: None (occurrence: None)
  Receive Date: 20110127
  Receipt Date: 20110124
  Transmission Date: 20110831
  Serious: Yes (Hospitalization, Other)
  Sender: FDA-Public Use
  Company Number: DE-ABBOTT-11P-062-0700271-00

PATIENT
  Sex: Male
  Weight: 96 kg

DRUGS (12)
  1. RIFAMPICIN [Concomitant]
     Indication: PRODUCT USED FOR UNKNOWN INDICATION
  2. PREDNISOLONE [Concomitant]
     Indication: PRODUCT USED FOR UNKNOWN INDICATION
  3. HUMIRA [Suspect]
     Indication: PSORIATIC ARTHROPATHY
     Route: 058
     Dates: start: 20100202, end: 20101201
  4. PANTOPRAZOL [Concomitant]
     Indication: PRODUCT USED FOR UNKNOWN INDICATION
  5. ISONIACID [Concomitant]
     Indication: PRODUCT USED FOR UNKNOWN INDICATION
  6. LEFLUNOMIDE [Concomitant]
     Indication: PRODUCT USED FOR UNKNOWN INDICATION
  7. VIT B [Concomitant]
     Indication: PRODUCT USED FOR UNKNOWN INDICATION
  8. ETHAMBUTOL HYDROCHLORIDE [Concomitant]
     Indication: PRODUCT USED FOR UNKNOWN INDICATION
  9. HUMIRA [Suspect]
     Dosage: ONE INJECTION
     Dates: start: 20110108
  10. AMLODIPINE [Concomitant]
     Indication: PRODUCT USED FOR UNKNOWN INDICATION
  11. ENALAPRIL [Concomitant]
     Indication: PRODUCT USED FOR UNKNOWN INDICATION
  12. PYRAZINAMIDE [Concomitant]
     Indication: PRODUCT USED FOR UNKNOWN INDICATION

REACTIONS (8)
  - STAPHYLOCOCCUS TEST POSITIVE [None]
  - LUNG NEOPLASM MALIGNANT [None]
  - TUBERCULOSIS [None]
  - COUGH [None]
  - PERIPHERAL SENSORY NEUROPATHY [None]
  - DYSPNOEA [None]
  - SINUSITIS [None]
  - OBSTRUCTIVE AIRWAYS DISORDER [None]
